FAERS Safety Report 10165093 (Version 1)
Quarter: 2014Q2

REPORT INFORMATION
  Report Type: Spontaneous
  Country: US (occurrence: US)
  Receive Date: 20140510
  Receipt Date: 20140510
  Transmission Date: 20141212
  Serious: No
  Sender: FDA-Public Use
  Company Number: US-BRISTOL-MYERS SQUIBB COMPANY-19721927

PATIENT
  Age: 57 Year
  Sex: Male
  Weight: 97.96 kg

DRUGS (4)
  1. BYDUREON [Suspect]
     Indication: TYPE 2 DIABETES MELLITUS
     Dates: start: 20131016
  2. TERAZOSIN [Concomitant]
  3. COZAAR [Concomitant]
  4. COREG [Concomitant]

REACTIONS (1)
  - Injection site pain [Not Recovered/Not Resolved]
